FAERS Safety Report 8025095-8 (Version None)
Quarter: 2012Q1

REPORT INFORMATION
  Report Type: 
  Country: None (occurrence: None)
  Receive Date: 20120105
  Receipt Date: 20120103
  Transmission Date: 20120608
  Serious: Yes (Other)
  Sender: FDA-Public Use
  Company Number: BR-ROCHE-760390

PATIENT
  Sex: Female
  Weight: 71 kg

DRUGS (5)
  1. MABTHERA [Suspect]
     Indication: PRODUCT USED FOR UNKNOWN INDICATION
     Dosage: FORM: INFUSION
     Route: 065
     Dates: start: 20090925, end: 20091009
  2. METHOTREXATE [Concomitant]
  3. MABTHERA [Suspect]
  4. METICORTEN [Concomitant]
  5. OMEPRAZOLE [Concomitant]

REACTIONS (6)
  - DIABETES MELLITUS [None]
  - CONJUNCTIVITIS [None]
  - LABYRINTHITIS [None]
  - PARAESTHESIA [None]
  - WEIGHT INCREASED [None]
  - URINARY TRACT INFECTION [None]
